FAERS Safety Report 4694789-4 (Version None)
Quarter: 2005Q2

REPORT INFORMATION
  Report Type: 
  Country: None (occurrence: None)
  Receive Date: 20050617
  Receipt Date: 20050606
  Transmission Date: 20051028
  Serious: Yes (Death, Hospitalization, Other)
  Sender: FDA-Public Use
  Company Number: 2005085923

PATIENT
  Age: 76 Year
  Sex: Male
  Weight: 79.3795 kg

DRUGS (2)
  1. BEXTRA [Suspect]
     Indication: ARTHRITIS
     Dosage: ORAL
     Route: 048
     Dates: start: 20030601
  2. VIOXX [Concomitant]

REACTIONS (4)
  - JOINT DISLOCATION [None]
  - MYOCARDIAL INFARCTION [None]
  - PAIN [None]
  - VASCULAR OCCLUSION [None]
